FAERS Safety Report 6535431-7 (Version None)
Quarter: 2010Q1

REPORT INFORMATION
  Report Type: 
  Country: None (occurrence: None)
  Receive Date: 20100111
  Receipt Date: 20100111
  Transmission Date: 20100710
  Serious: Yes (Other)
  Sender: FDA-Public Use
  Company Number: None

PATIENT
  Age: 81 Year
  Sex: Female
  Weight: 52.1637 kg

DRUGS (2)
  1. LOVASTATIN [Suspect]
     Dosage: 20 MG 1 A DAY ORAL
     Route: 048
  2. CRESTOR [Suspect]
     Dosage: CRESTOR 10MG 1 A DAY ORAL
     Route: 048

REACTIONS (5)
  - ARTHRALGIA [None]
  - BONE PAIN [None]
  - MYALGIA [None]
  - PAIN IN EXTREMITY [None]
  - PAIN IN JAW [None]
